FAERS Safety Report 7002550-0 (Version None)
Quarter: 2010Q3

REPORT INFORMATION
  Report Type: 
  Country: None (occurrence: None)
  Receive Date: 20100920
  Receipt Date: 20090910
  Transmission Date: 20110219
  Serious: No
  Sender: FDA-Public Use
  Company Number: US-ASTRAZENECA-2009SE12348

PATIENT
  Age: 559 Month
  Sex: Female
  Weight: 56.7 kg

DRUGS (7)
  1. SEROQUEL [Suspect]
     Indication: SLEEP DISORDER
     Route: 048
     Dates: start: 20090101
  2. SEROQUEL [Suspect]
     Dosage: 1/2 TABLET AS NEEDED
     Route: 048
     Dates: start: 20090801
  3. VITAMIN B-12 [Concomitant]
  4. DALMANE [Concomitant]
     Indication: SLEEP DISORDER
  5. XANAX [Concomitant]
  6. FENTANYL-75 [Concomitant]
  7. LEXAPRO [Concomitant]

REACTIONS (3)
  - HANGOVER [None]
  - MEDICATION ERROR [None]
  - WEIGHT INCREASED [None]
